FAERS Safety Report 7814446-2 (Version None)
Quarter: 2011Q4

REPORT INFORMATION
  Report Type: 
  Country: None (occurrence: None)
  Receive Date: 20111011
  Receipt Date: 20110926
  Transmission Date: 20120403
  Serious: Yes (Other)
  Sender: FDA-Public Use
  Company Number: 2011SP045642

PATIENT
  Sex: Male

DRUGS (3)
  1. VICTRELIS [Suspect]
     Indication: HEPATITIS C
     Dates: start: 20110917
  2. PEG-INTRON [Suspect]
     Indication: HEPATITIS C
     Dates: start: 20110821
  3. RIBAVIRIN [Suspect]
     Indication: HEPATITIS C
     Dates: start: 20110821

REACTIONS (4)
  - VASCULITIS [None]
  - EATING DISORDER [None]
  - ABDOMINAL PAIN UPPER [None]
  - HYPERSOMNIA [None]
